FAERS Safety Report 7590704-4 (Version None)
Quarter: 2011Q3

REPORT INFORMATION
  Report Type: 
  Country: None (occurrence: None)
  Receive Date: 20110705
  Receipt Date: 20110624
  Transmission Date: 20111222
  Serious: Yes (Other)
  Sender: FDA-Public Use
  Company Number: PHHY2011GB56220

PATIENT
  Age: 12 Year
  Sex: Male

DRUGS (2)
  1. CLONIDINE [Suspect]
     Dosage: UNK
     Route: 048
     Dates: start: 20110317, end: 20110421
  2. ATENOLOL [Concomitant]
     Route: 048

REACTIONS (7)
  - INAPPROPRIATE AFFECT [None]
  - WITHDRAWAL SYNDROME [None]
  - PYREXIA [None]
  - AUTONOMIC NERVOUS SYSTEM IMBALANCE [None]
  - TACHYCARDIA [None]
  - SEDATION [None]
  - VOMITING [None]
